FAERS Safety Report 8567156-0 (Version None)
Quarter: 2012Q3

REPORT INFORMATION
  Report Type: 
  Country: None (occurrence: None)
  Receive Date: 20120730
  Receipt Date: 20120730
  Transmission Date: 20120928
  Serious: Yes (Hospitalization)
  Sender: FDA-Public Use
  Company Number: None

PATIENT
  Age: 74 Year
  Sex: Female
  Weight: 63.6 kg

DRUGS (8)
  1. MEPIVACAINE HCL [Suspect]
     Indication: ANAESTHESIA
     Dosage: ONCE IV  RECENT
     Route: 042
  2. DIGOXIN [Concomitant]
  3. VIT D3 [Concomitant]
  4. FLECAINIDE ACETATE [Concomitant]
  5. ASPIRIN [Concomitant]
  6. M.V.I. [Concomitant]
  7. PREDNISOLONE [Concomitant]
  8. NUVIGIL [Concomitant]

REACTIONS (1)
  - ANAPHYLACTIC REACTION [None]
